FAERS Safety Report 18558647 (Version 4)
Quarter: 2021Q1

REPORT INFORMATION
  Report Type: Report from Study
  Country: US (occurrence: US)
  Receive Date: 20201130
  Receipt Date: 20210316
  Transmission Date: 20210419
  Serious: Yes (Other)
  Sender: FDA-Public Use
  Company Number: NVSC2020US313404

PATIENT
  Sex: Male

DRUGS (1)
  1. ENTRESTO [Suspect]
     Active Substance: SACUBITRIL\VALSARTAN
     Indication: CARDIAC FAILURE
     Dosage: UNK
     Route: 048
     Dates: start: 202011, end: 202012

REACTIONS (6)
  - Intellectual disability [Unknown]
  - Diabetes mellitus [Unknown]
  - Blood pressure decreased [Unknown]
  - Throat clearing [Unknown]
  - Cardiac disorder [Unknown]
  - Pneumonia [Recovering/Resolving]
